FAERS Safety Report 5369580-6 (Version None)
Quarter: 2007Q2

REPORT INFORMATION
  Report Type: 
  Country: None (occurrence: None)
  Receive Date: 20070625
  Receipt Date: 20070619
  Transmission Date: 20071010
  Serious: Yes (Other)
  Sender: FDA-Public Use
  Company Number: US-PFIZER INC-2004121932

PATIENT
  Sex: Male
  Weight: 90.3 kg

DRUGS (5)
  1. CELEBREX [Suspect]
     Indication: ARTHRITIS
     Dates: start: 20041111, end: 20070603
  2. CELEBREX [Suspect]
     Indication: PSORIATIC ARTHROPATHY
  3. ZYRTEC [Suspect]
     Indication: SINUSITIS
  4. LIPITOR [Concomitant]
     Route: 048
  5. HUMIRA [Concomitant]

REACTIONS (10)
  - ARTHRALGIA [None]
  - BIPOLAR DISORDER [None]
  - CHILLS [None]
  - HEADACHE [None]
  - LYMPHADENOPATHY [None]
  - NASAL CONGESTION [None]
  - OEDEMA PERIPHERAL [None]
  - PAIN [None]
  - PYREXIA [None]
  - SINUSITIS [None]
